APPROVED DRUG PRODUCT: THALLOUS CHLORIDE TL 201
Active Ingredient: THALLOUS CHLORIDE TL-201
Strength: 1mCi/ML
Dosage Form/Route: INJECTABLE;INJECTION
Application: A075569 | Product #001
Applicant: TRACE LIFE SCIENCES INC
Approved: Nov 21, 2001 | RLD: No | RS: No | Type: DISCN